FAERS Safety Report 4481289-X (Version None)
Quarter: 2004Q4

REPORT INFORMATION
  Report Type: 
  Country: None (occurrence: None)
  Receive Date: 20040923
  Receipt Date: 20040629
  Transmission Date: 20050328
  Serious: No
  Sender: FDA-Public Use
  Company Number: USA030538391

PATIENT
  Age: 83 Year
  Sex: Female

DRUGS (2)
  1. FORTEO [Suspect]
     Indication: OSTEOPOROSIS
     Dates: start: 20030301
  2. MORPHINE [Concomitant]

REACTIONS (2)
  - FEELING ABNORMAL [None]
  - LIGAMENT INJURY [None]
